FAERS Safety Report 7436252-3 (Version None)
Quarter: 2011Q2

REPORT INFORMATION
  Report Type: 
  Country: None (occurrence: None)
  Receive Date: 20110425
  Receipt Date: 20110411
  Transmission Date: 20111010
  Serious: Yes (Hospitalization)
  Sender: FDA-Public Use
  Company Number: AT-MYLANLABS-2011S1007335

PATIENT
  Age: 66 Year
  Sex: Female
  Weight: 55 kg

DRUGS (8)
  1. GERIATRIC PHARMATON /00352901/ [Concomitant]
     Indication: PRODUCT USED FOR UNKNOWN INDICATION
  2. EUTHYROX [Concomitant]
     Indication: PRODUCT USED FOR UNKNOWN INDICATION
  3. CONCOR [Concomitant]
     Indication: HYPERTENSION
     Dates: start: 20100209
  4. NEUROBION [Concomitant]
     Indication: PRODUCT USED FOR UNKNOWN INDICATION
  5. PROSPAN [Concomitant]
     Indication: COUGH
  6. LISINOPRIL [Suspect]
     Indication: HYPERTENSION
     Dates: start: 20100204, end: 20100225
  7. HYPERICUM [Concomitant]
     Indication: PRODUCT USED FOR UNKNOWN INDICATION
  8. DEFLAMAT /00372302/ [Concomitant]
     Indication: MUSCULOSKELETAL PAIN

REACTIONS (1)
  - DRUG ERUPTION [None]
